FAERS Safety Report 10258083 (Version 1)
Quarter: 2014Q2

REPORT INFORMATION
  Report Type: Spontaneous
  Country: US (occurrence: None)
  Receive Date: 20140623
  Receipt Date: 20140623
  Transmission Date: 20141212
  Serious: No
  Sender: FDA-Public Use
  Company Number: None

PATIENT
  Age: 67 Year
  Sex: Female
  Weight: 60.5 kg

DRUGS (1)
  1. CISPLATIN [Suspect]

REACTIONS (5)
  - Neutrophil count decreased [None]
  - Chills [None]
  - Body temperature increased [None]
  - Staphylococcus test positive [None]
  - Mucosal inflammation [None]
